FAERS Safety Report 9980081 (Version 1)
Quarter: 2014Q1

REPORT INFORMATION
  Report Type: Spontaneous
  Country: US (occurrence: US)
  Receive Date: 20140307
  Receipt Date: 20140307
  Transmission Date: 20141002
  Serious: No
  Sender: FDA-Public Use
  Company Number: US-ABBVIE-13P-163-1174210-00

PATIENT
  Age: 64 Year
  Sex: Male

DRUGS (3)
  1. HUMIRA [Suspect]
     Indication: AUTOIMMUNE DISORDER
     Dates: start: 20131030
  2. HUMIRA [Suspect]
     Indication: ANKYLOSING SPONDYLITIS
  3. PREDNISONE [Concomitant]
     Indication: AUTOIMMUNE DISORDER
     Dosage: TAPERED DOSES
     Dates: start: 201309

REACTIONS (1)
  - Pain in extremity [Not Recovered/Not Resolved]
